FAERS Safety Report 10052224 (Version 1)
Quarter: 2014Q2

REPORT INFORMATION
  Report Type: Spontaneous
  Country: US (occurrence: US)
  Receive Date: 20140402
  Receipt Date: 20140402
  Transmission Date: 20141212
  Serious: Yes (Other)
  Sender: FDA-Public Use
  Company Number: US-BAYER-2014-049143

PATIENT
  Age: 38 Year
  Sex: Female
  Weight: 80.27 kg

DRUGS (16)
  1. YAZ [Suspect]
  2. YASMIN [Suspect]
  3. OCELLA [Suspect]
  4. ACTOS [Concomitant]
     Dosage: 30 MG, UNK
  5. CRESTOR [Concomitant]
     Dosage: 20 MG, UNK
  6. JANUVIA [Concomitant]
     Dosage: 100 MG, UNK
  7. METFORMIN [Concomitant]
     Dosage: 500 MG, UNK
  8. LANTUS [Concomitant]
  9. JANUMET [Concomitant]
  10. VITAMIN D [Concomitant]
     Dosage: 50,000 UNITS
  11. CEFDINIR [Concomitant]
     Dosage: 300 MG, UNK
  12. NASONEX [Concomitant]
  13. ZOCOR [Concomitant]
  14. FRAGMIN [Concomitant]
  15. SIMVASTATIN [Concomitant]
  16. CAMILA [Concomitant]

REACTIONS (1)
  - Deep vein thrombosis [None]
